FAERS Safety Report 9680809 (Version 2)
Quarter: 2013Q4

REPORT INFORMATION
  Report Type: Spontaneous
  Country: IT (occurrence: IT)
  Receive Date: 20131111
  Receipt Date: 20131112
  Transmission Date: 20140711
  Serious: Yes (Other)
  Sender: FDA-Public Use
  Company Number: PHHY2013IT126858

PATIENT
  Age: 67 Year
  Sex: Female

DRUGS (1)
  1. CICLOSPORIN [Suspect]
     Indication: PSORIASIS
     Dosage: 25 MG/KG, DAILY
     Route: 048
     Dates: start: 20130301, end: 20130522

REACTIONS (1)
  - Hypertensive crisis [Recovered/Resolved]
